FAERS Safety Report 10065485 (Version 2)
Quarter: 2014Q2

REPORT INFORMATION
  Report Type: Report from Study
  Country: US (occurrence: US)
  Receive Date: 20140408
  Receipt Date: 20140408
  Transmission Date: 20141212
  Serious: Yes (Life-Threatening)
  Sender: FDA-Public Use
  Company Number: PHEH2014US006096

PATIENT
  Age: 75 Year
  Sex: Male

DRUGS (23)
  1. NEURONTIN [Suspect]
     Dosage: UNK UKN, UNK
  2. NEURONTIN [Suspect]
     Dosage: 0.5 DF, QD
  3. NEURONTIN [Suspect]
     Dosage: 0.5 DF, QOD
  4. PRILOSEC [Concomitant]
     Dosage: 20 MG, DAILY (ON ANIBIOTIC)
  5. PRILOSEC [Concomitant]
     Dosage: 20 MG, QOD (WITHOUT ANTIBIOTIC)
  6. THEOPHYLLINE [Concomitant]
     Dosage: 0.5 DF, TID
  7. BACLOFEN [Concomitant]
     Dosage: 10 MG, QD
  8. ADVAIR DISKUS [Concomitant]
     Dosage: UNK UKN, QOD
  9. ADVAIR DISKUS [Concomitant]
     Dosage: 500/50 BID
  10. NAMENDA [Concomitant]
     Dosage: 10 MG, BID
  11. PROVENTIL [Concomitant]
     Dosage: 1 PUFF, PRN
  12. TRILEPTAL [Concomitant]
     Dosage: 0.5 DF, BID
  13. MIRALAX [Concomitant]
     Dosage: ONCE DAY
  14. CEFATRIZINE PROPYLENEGLYCOLATE [Concomitant]
     Dosage: UNK UKN, UNK
  15. MUCINEX [Concomitant]
     Indication: RESPIRATORY TRACT INFECTION
     Dosage: UNK UKN, Q12H
  16. MULTI-VIT [Concomitant]
     Dosage: UNK UKN, UNK
  17. ROSUVASTATIN [Concomitant]
     Dosage: 10 MG, UNK
  18. DULCOLAX [Concomitant]
     Dosage: ONE OR TWO TIMES A DAY
  19. ANTIBIOTICS [Concomitant]
     Dosage: UNK UKN, UNK
  20. CEFUROXIME [Concomitant]
     Indication: RESPIRATORY TRACT INFECTION
     Dosage: 500 MG, BID
  21. RIVASTIGMINE [Suspect]
     Indication: DEMENTIA ALZHEIMER^S TYPE
     Dosage: 4.5 MG (CAPSULE), QD
     Route: 048
     Dates: start: 20140311, end: 20140311
  22. EXELON PATCH [Suspect]
     Indication: DEMENTIA ALZHEIMER^S TYPE
     Dosage: 4.6 MG, QD
     Route: 062
     Dates: start: 20140304, end: 20140311
  23. EXELON PATCH [Suspect]
     Dosage: UNK
     Route: 062
     Dates: start: 20140312

REACTIONS (7)
  - Malaise [Recovered/Resolved]
  - Pallor [Recovered/Resolved]
  - Cold sweat [Recovered/Resolved]
  - Asthenia [Recovered/Resolved]
  - Fatigue [Recovered/Resolved]
  - Headache [Not Recovered/Not Resolved]
  - Drug ineffective [Not Recovered/Not Resolved]
